FAERS Safety Report 4880269-X (Version None)
Quarter: 2006Q1

REPORT INFORMATION
  Report Type: 
  Country: None (occurrence: None)
  Receive Date: 20060113
  Receipt Date: 20051215
  Transmission Date: 20060701
  Serious: Yes (Life-Threatening)
  Sender: FDA-Public Use
  Company Number: 2005CG02089

PATIENT
  Age: 67 Year
  Sex: Male

DRUGS (2)
  1. XYLOCAINE [Suspect]
     Route: 037
     Dates: start: 20051124, end: 20051124
  2. CELESTENE [Suspect]
     Route: 037
     Dates: start: 20051124, end: 20051124

REACTIONS (6)
  - APNOEA [None]
  - CIRCULATORY COLLAPSE [None]
  - HYPERHIDROSIS [None]
  - INCORRECT ROUTE OF DRUG ADMINISTRATION [None]
  - MOTOR DYSFUNCTION [None]
  - NAUSEA [None]
